FAERS Safety Report 8600492 (Version 2)
Quarter: 2012Q4

REPORT INFORMATION
  Report Type: 
  Country: US (occurrence: US)
  Receive Date: 20120606
  Receipt Date: 20120829
  Transmission Date: 20130627
  Serious: No
  Sender: FDA-Public Use
  Company Number: US-PFIZER INC-2012131396

PATIENT
  Age: 63 Year
  Sex: Female

DRUGS (1)
  1. XALKORI [Suspect]
     Indication: TRACHEAL CANCER
     Dosage: 250 mg, 2x/day
     Dates: start: 20120406

REACTIONS (3)
  - Disease progression [Unknown]
  - Tracheal cancer [Unknown]
  - Haemoptysis [Unknown]
